FAERS Safety Report 17814709 (Version 1)
Quarter: 2020Q2

REPORT INFORMATION
  Report Type: Spontaneous
  Country: RO (occurrence: RO)
  Receive Date: 20200522
  Receipt Date: 20200522
  Transmission Date: 20200714
  Serious: Yes (Hospitalization, Other)
  Sender: FDA-Public Use
  Company Number: RO-AUROBINDO-AUR-APL-2020-025520

PATIENT
  Age: 43 Year
  Sex: Female

DRUGS (9)
  1. ACYCLOVIR. [Suspect]
     Active Substance: ACYCLOVIR
     Dosage: 1500 MILLIGRAM, ONCE A DAY
     Route: 042
  2. FUROSEMIDE. [Concomitant]
     Active Substance: FUROSEMIDE
     Indication: HYPERTENSION
     Dosage: UNK
     Route: 065
  3. ACICLOVIR [Suspect]
     Active Substance: ACYCLOVIR
     Indication: ENCEPHALITIS VIRAL
     Dosage: 2 DOSAGE FORM, FOUR TIMES/DAY (2 DF, 4X PER DAY (400MG 2DF 4X PER DAY))
     Route: 065
  4. LEVETIRACETAM. [Concomitant]
     Active Substance: LEVETIRACETAM
     Indication: PROPHYLAXIS
     Dosage: 1 DOSAGE FORM, TWO TIMES A DAY
     Route: 065
  5. DEXAMETHASONE. [Suspect]
     Active Substance: DEXAMETHASONE
     Indication: ENCEPHALITIS VIRAL
     Dosage: UNK
     Route: 065
  6. MANNITOL. [Suspect]
     Active Substance: MANNITOL
     Indication: ENCEPHALITIS VIRAL
     Dosage: 20 PERCENT
     Route: 065
  7. ACYCLOVIR. [Suspect]
     Active Substance: ACYCLOVIR
     Indication: ENCEPHALITIS VIRAL
     Dosage: 1500 MILLIGRAM, ONCE A DAY
     Route: 065
  8. ENALAPRIL [Suspect]
     Active Substance: ENALAPRIL
     Indication: HYPERTENSION
     Dosage: UNK
     Route: 065
  9. INDAPAMIDE. [Suspect]
     Active Substance: INDAPAMIDE
     Indication: HYPERTENSION
     Dosage: UNK
     Route: 065

REACTIONS (2)
  - Hepatocellular injury [Recovering/Resolving]
  - Drug ineffective [Recovering/Resolving]
